FAERS Safety Report 9397015 (Version 1)
Quarter: 2013Q3

REPORT INFORMATION
  Report Type: Spontaneous
  Country: US (occurrence: US)
  Receive Date: 20130712
  Receipt Date: 20130712
  Transmission Date: 20140515
  Serious: Yes (Hospitalization, Other)
  Sender: FDA-Public Use
  Company Number: US-ROCHE-1246397

PATIENT
  Age: 25 Year
  Sex: Female

DRUGS (6)
  1. KLONOPIN [Suspect]
     Indication: PRODUCT USED FOR UNKNOWN INDICATION
     Route: 065
  2. DEPAKOTE [Suspect]
     Indication: PRODUCT USED FOR UNKNOWN INDICATION
     Route: 065
  3. KEPPRA XR [Concomitant]
  4. ELAVIL (UNITED STATES) [Concomitant]
     Route: 065
     Dates: end: 2012
  5. TOPAMAX [Concomitant]
     Route: 065
     Dates: end: 201302
  6. SEROQUEL [Concomitant]
     Route: 065
     Dates: end: 201302

REACTIONS (5)
  - Convulsion [Unknown]
  - Anxiety [Unknown]
  - Placental disorder [Unknown]
  - Somnolence [Not Recovered/Not Resolved]
  - Exposure during pregnancy [Unknown]
